FAERS Safety Report 7644482-0 (Version None)
Quarter: 2011Q3

REPORT INFORMATION
  Report Type: 
  Country: None (occurrence: None)
  Receive Date: 20110729
  Receipt Date: 20110721
  Transmission Date: 20111222
  Serious: Yes (Death, Hospitalization, Other)
  Sender: FDA-Public Use
  Company Number: US-ROCHE-791834

PATIENT
  Sex: Male

DRUGS (1)
  1. XELODA [Suspect]
     Route: 065

REACTIONS (9)
  - RENAL FAILURE [None]
  - DIARRHOEA [None]
  - NAUSEA [None]
  - DYSPHAGIA [None]
  - HEART RATE INCREASED [None]
  - DEATH [None]
  - OEDEMA PERIPHERAL [None]
  - MALAISE [None]
  - BLOOD PRESSURE INADEQUATELY CONTROLLED [None]
